FAERS Safety Report 5226321-0 (Version None)
Quarter: 2007Q1

REPORT INFORMATION
  Report Type: 
  Country: None (occurrence: None)
  Receive Date: 20070201
  Receipt Date: 20070123
  Transmission Date: 20070707
  Serious: Yes (Death, Life-Threatening, Hospitalization, Disabling, Other)
  Sender: FDA-Public Use
  Company Number: GB-ELI_LILLY_AND_COMPANY-GB200701004370

PATIENT
  Age: 86 Year
  Sex: Male
  Weight: 60 kg

DRUGS (3)
  1. ZYPREXA [Suspect]
     Dosage: 5 MG, UNK
     Route: 048
     Dates: start: 20061222, end: 20070101
  2. CLOPIXOL DEPOT [Concomitant]
     Dosage: 100 MG, UNK
     Route: 030
     Dates: start: 20070103, end: 20070103
  3. PRIADEL [Concomitant]
     Dosage: 400 MG, UNK
     Route: 048
     Dates: end: 20070103

REACTIONS (2)
  - LEUKOCYTOSIS [None]
  - NEUROLEPTIC MALIGNANT SYNDROME [None]
